FAERS Safety Report 12374236 (Version 1)
Quarter: 2016Q2

REPORT INFORMATION
  Report Type: Spontaneous
  Country: US (occurrence: None)
  Receive Date: 20160516
  Receipt Date: 20160516
  Transmission Date: 20160815
  Serious: Yes (Other)
  Sender: FDA-Public Use
  Company Number: None

PATIENT
  Age: 56 Year
  Sex: Male
  Weight: 111.13 kg

DRUGS (12)
  1. BUPRENORPHINE 8MG,/ NALOXONE 2MG, 8 MG [Suspect]
     Active Substance: BUPRENORPHINE HYDROCHLORIDE\NALOXONE
     Indication: DRUG DEPENDENCE
     Dosage: 28 TABLET(S) IN THE MORNING TAKEN UNDER THE TONGUE
     Route: 060
     Dates: start: 20160404
  2. CYMBALTA [Concomitant]
     Active Substance: DULOXETINE HYDROCHLORIDE
  3. VENLEFAXINE [Concomitant]
  4. LOMOTIL [Concomitant]
     Active Substance: ATROPINE SULFATE\DIPHENOXYLATE HYDROCHLORIDE
  5. NEUROTIN [Concomitant]
     Active Substance: GABAPENTIN
  6. MULTI-VITAMIN [Concomitant]
     Active Substance: .ALPHA.-TOCOPHEROL ACETATE, DL-\ASCORBIC ACID\CYANOCOBALAMIN\FLUORIDE ION\FOLIC ACID\NIACIN\PYRIDOXINE\RIBOFLAVIN\THIAMINE\VITAMIN A\VITAMIN D
  7. ATENOLOL. [Concomitant]
     Active Substance: ATENOLOL
  8. ROBAXIN [Concomitant]
     Active Substance: METHOCARBAMOL
  9. DEPAKOTE [Concomitant]
     Active Substance: DIVALPROEX SODIUM
  10. KEPPRA [Concomitant]
     Active Substance: LEVETIRACETAM
  11. SUBOXONE [Concomitant]
     Active Substance: BUPRENORPHINE HYDROCHLORIDE\NALOXONE HYDROCHLORIDE
  12. FISH OIL [Concomitant]
     Active Substance: FISH OIL

REACTIONS (2)
  - Mood swings [None]
  - Personality change [None]

NARRATIVE: CASE EVENT DATE: 20160404
